FAERS Safety Report 23631184 (Version 1)
Quarter: 2024Q1

REPORT INFORMATION
  Report Type: Spontaneous
  Country: HR (occurrence: None)
  Receive Date: 20240314
  Receipt Date: 20240314
  Transmission Date: 20240410
  Serious: Yes (Other)
  Sender: FDA-Public Use
  Company Number: 2024A055653

PATIENT
  Age: 15 Year
  Sex: Female

DRUGS (2)
  1. QUETIAPINE [Suspect]
     Active Substance: QUETIAPINE
     Dosage: 1 DF = 1 TABLET
     Route: 048
     Dates: start: 20231230, end: 20231230
  2. DIAZEPAM [Suspect]
     Active Substance: DIAZEPAM
     Dosage: 1 DF = 1 TABLET
     Route: 048
     Dates: start: 20231230, end: 20231230

REACTIONS (3)
  - Intentional overdose [Unknown]
  - Suicide attempt [Unknown]
  - Somnolence [Unknown]

NARRATIVE: CASE EVENT DATE: 20231230
